FAERS Safety Report 5315526-6 (Version None)
Quarter: 2007Q2

REPORT INFORMATION
  Report Type: 
  Country: None (occurrence: None)
  Receive Date: 20070503
  Receipt Date: 20070424
  Transmission Date: 20071010
  Serious: Yes (Hospitalization, Other)
  Sender: FDA-Public Use
  Company Number: FR-AVENTIS-200711480FR

PATIENT
  Age: 29 Year
  Sex: Male

DRUGS (5)
  1. LOVENOX [Suspect]
     Indication: DRUG USE FOR UNKNOWN INDICATION
     Route: 058
     Dates: start: 20070228, end: 20070314
  2. HEPARINE CHOAY [Concomitant]
     Indication: DRUG USE FOR UNKNOWN INDICATION
     Route: 042
     Dates: start: 20070307, end: 20070319
  3. CALCIPARINE [Concomitant]
     Indication: DRUG USE FOR UNKNOWN INDICATION
     Route: 058
     Dates: start: 20070312, end: 20070319
  4. CISPLATIN [Concomitant]
     Route: 042
     Dates: start: 20070315
  5. GEMZAR [Concomitant]
     Route: 042
     Dates: start: 20070315

REACTIONS (2)
  - PERIPHERAL ISCHAEMIA [None]
  - THROMBOCYTOPENIA [None]
